FAERS Safety Report 7406053-0 (Version None)
Quarter: 2011Q2

REPORT INFORMATION
  Report Type: 
  Country: None (occurrence: None)
  Receive Date: 20110411
  Receipt Date: 20110330
  Transmission Date: 20111010
  Serious: Yes (Hospitalization)
  Sender: FDA-Public Use
  Company Number: B0703805A

PATIENT
  Sex: Male

DRUGS (3)
  1. FLAGYL [Concomitant]
     Route: 042
     Dates: start: 20110225, end: 20110302
  2. FLUCONAZOLE [Concomitant]
     Dosage: 100MG PER DAY
     Route: 042
     Dates: start: 20110226
  3. ZOVIRAX [Suspect]
     Indication: ENCEPHALITIS HERPES
     Route: 042
     Dates: start: 20110225, end: 20110315

REACTIONS (3)
  - ALTERED STATE OF CONSCIOUSNESS [None]
  - APNOEA [None]
  - ENCEPHALOPATHY [None]
